FAERS Safety Report 12434477 (Version 1)
Quarter: 2016Q2

REPORT INFORMATION
  Report Type: Spontaneous
  Country: US (occurrence: US)
  Receive Date: 20160603
  Receipt Date: 20160603
  Transmission Date: 20160815
  Serious: No
  Sender: FDA-Public Use
  Company Number: US-OTSUKA-2016_008230

PATIENT

DRUGS (2)
  1. SAMSCA [Suspect]
     Active Substance: TOLVAPTAN
     Indication: BLOOD SODIUM DECREASED
     Dosage: 15 MG, QD
     Route: 048
     Dates: start: 20160412
  2. SAMSCA [Suspect]
     Active Substance: TOLVAPTAN
     Indication: LUNG NEOPLASM MALIGNANT

REACTIONS (1)
  - Polyuria [Unknown]

NARRATIVE: CASE EVENT DATE: 201604
